FAERS Safety Report 12689641 (Version 1)
Quarter: 2016Q3

REPORT INFORMATION
  Report Type: Spontaneous
  Country: US (occurrence: None)
  Receive Date: 20160825
  Receipt Date: 20160825
  Transmission Date: 20161109
  Serious: No
  Sender: FDA-Public Use
  Company Number: None

PATIENT
  Age: 50 Year
  Sex: Female
  Weight: 68.49 kg

DRUGS (1)
  1. RIVAVIRIN [Suspect]
     Active Substance: RIBAVIRIN
     Indication: HEPATITIS C
     Dosage: 200MG/400MG
     Route: 048
     Dates: start: 20160812

REACTIONS (5)
  - Abdominal distension [None]
  - Nausea [None]
  - Abdominal discomfort [None]
  - Insomnia [None]
  - Feeling abnormal [None]
